FAERS Safety Report 15853388 (Version 2)
Quarter: 2019Q1

REPORT INFORMATION
  Report Type: Spontaneous
  Country: US (occurrence: US)
  Receive Date: 20190122
  Receipt Date: 20190314
  Transmission Date: 20190417
  Serious: Yes (Other)
  Sender: FDA-Public Use
  Company Number: US-AMGEN-USASP2019007253

PATIENT
  Age: 51 Year
  Sex: Female

DRUGS (3)
  1. PROLIA [Suspect]
     Active Substance: DENOSUMAB
     Indication: OSTEOPOROSIS POSTMENOPAUSAL
     Dosage: 60 MG, Q6MO
     Route: 058
     Dates: start: 20180918
  2. ASPIRIN. [Concomitant]
     Active Substance: ASPIRIN
  3. MELOXICAM. [Concomitant]
     Active Substance: MELOXICAM
     Indication: ARTHRITIS
     Dosage: UNK

REACTIONS (19)
  - Arthritis [Not Recovered/Not Resolved]
  - Impaired work ability [Not Recovered/Not Resolved]
  - Headache [Not Recovered/Not Resolved]
  - Vomiting [Not Recovered/Not Resolved]
  - Nausea [Not Recovered/Not Resolved]
  - Influenza [Unknown]
  - Gingival swelling [Unknown]
  - Cough [Unknown]
  - Fall [Unknown]
  - Dizziness [Not Recovered/Not Resolved]
  - Muscle tightness [Unknown]
  - Mobility decreased [Unknown]
  - Exposed bone in jaw [Not Recovered/Not Resolved]
  - Pain [Not Recovered/Not Resolved]
  - Ear pain [Unknown]
  - Bone loss [Unknown]
  - Inflammation [Unknown]
  - Myalgia [Not Recovered/Not Resolved]
  - Hypersensitivity [Recovered/Resolved]

NARRATIVE: CASE EVENT DATE: 201809
